FAERS Safety Report 6369744-9 (Version None)
Quarter: 2009Q3

REPORT INFORMATION
  Report Type: 
  Country: None (occurrence: None)
  Receive Date: 20090923
  Receipt Date: 20090918
  Transmission Date: 20100115
  Serious: Yes (Life-Threatening, Hospitalization)
  Sender: FDA-Public Use
  Company Number: US-BAYER-200933366NA

PATIENT
  Age: 77 Year
  Sex: Male
  Weight: 122 kg

DRUGS (11)
  1. SORAFENIB [Suspect]
     Indication: HEPATIC NEOPLASM MALIGNANT RECURRENT
     Dosage: TOTAL DAILY DOSE: 800 MG  UNIT DOSE: 200 MG
     Route: 048
     Dates: start: 20090903, end: 20090908
  2. IMC-A12 [Suspect]
     Indication: HEPATIC NEOPLASM MALIGNANT RECURRENT
     Dosage: TOTAL DAILY DOSE: 1223 MG
     Route: 042
     Dates: start: 20090903, end: 20090903
  3. METFORMIN HCL [Concomitant]
     Indication: TYPE 2 DIABETES MELLITUS
  4. LASIX [Concomitant]
  5. ISOSORBIDE [Concomitant]
     Indication: CORONARY ARTERY DISEASE
  6. NEXIUM [Concomitant]
  7. LISINOPRIL [Concomitant]
     Indication: HYPERTENSION
  8. HYDROCHLOROTHIAZIDE [Concomitant]
     Indication: HYPERTENSION
  9. PLAVIX [Concomitant]
     Indication: CORONARY ARTERY DISEASE
  10. ASPIRIN [Concomitant]
     Indication: CORONARY ARTERY DISEASE
  11. LOVAZA [Concomitant]

REACTIONS (4)
  - DEHYDRATION [None]
  - RENAL FAILURE ACUTE [None]
  - RESPIRATORY FAILURE [None]
  - SEPTIC SHOCK [None]
